FAERS Safety Report 6700328-6 (Version None)
Quarter: 2010Q2

REPORT INFORMATION
  Report Type: 
  Country: None (occurrence: None)
  Receive Date: 20100426
  Receipt Date: 20100411
  Transmission Date: 20101027
  Serious: Yes (Other)
  Sender: FDA-Public Use
  Company Number: GB-ACCORD-004760

PATIENT
  Age: 72 Year
  Sex: Female
  Weight: 96 kg

DRUGS (8)
  1. SIMVASTATIN [Suspect]
     Indication: DRUG USE FOR UNKNOWN INDICATION
     Dosage: ORAL
     Route: 048
  2. ATORVASTATIN CALCIUM [Suspect]
     Indication: DRUG USE FOR UNKNOWN INDICATION
  3. PIOGLITAZONE (PIOGLITAZONE) [Suspect]
     Indication: DRUG USE FOR UNKNOWN INDICATION
     Dosage: 30.00-MG-1.00 PER-1.0 DAYS
     Dates: start: 20070201
  4. PIOGLITAZONE (PIOGLITAZONE) [Suspect]
     Indication: DRUG USE FOR UNKNOWN INDICATION
     Dosage: 30.00-MG-1.00 PER-1.0 DAYS
     Dates: start: 20070501
  5. ROSIGLITAZONE [Suspect]
     Indication: DRUG USE FOR UNKNOWN INDICATION
     Dosage: 8.00-MG-1.0/0 PER-1.0 DAYS
     Dates: start: 20050601
  6. SUPRALIP (SUPRALIP) [Suspect]
     Indication: DRUG USE FOR UNKNOWN INDICATION
     Dosage: 160.00-MG/1.00 PER-1.0 DAYS
     Dates: start: 20030501
  7. METFORMIN HCL [Concomitant]
  8. ROSUVASTATIN (ROSUVASTATIN) [Concomitant]

REACTIONS (4)
  - GLYCOSYLATED HAEMOGLOBIN INCREASED [None]
  - HIGH DENSITY LIPOPROTEIN DECREASED [None]
  - INSULIN RESISTANCE [None]
  - MYALGIA [None]
